FAERS Safety Report 7740023-8 (Version None)
Quarter: 2011Q3

REPORT INFORMATION
  Report Type: 
  Country: None (occurrence: None)
  Receive Date: 20110909
  Receipt Date: 20110831
  Transmission Date: 20111222
  Serious: Yes (Other)
  Sender: FDA-Public Use
  Company Number: CA-JNJFOC-20110801476

PATIENT
  Sex: Female
  Weight: 44 kg

DRUGS (7)
  1. REMICADE [Suspect]
     Route: 042
     Dates: start: 20110521, end: 20110521
  2. REMICADE [Suspect]
     Route: 042
     Dates: start: 20110301, end: 20110301
  3. PREDNISONE [Concomitant]
     Route: 065
  4. REMICADE [Suspect]
     Indication: CROHN'S DISEASE
     Route: 042
     Dates: start: 20110719
  5. REMICADE [Suspect]
     Route: 042
     Dates: start: 20110326, end: 20110326
  6. IMURAN [Concomitant]
     Indication: CROHN'S DISEASE
     Dosage: EXPOSED IN BETWEEN WEEKS 0-30
     Route: 048
     Dates: start: 20080814
  7. REMICADE [Suspect]
     Dosage: EXPOSED IN BETWEEN WEEKS 24-30
     Route: 042
     Dates: start: 20110214, end: 20110214

REACTIONS (2)
  - PREMATURE LABOUR [None]
  - MATERNAL EXPOSURE DURING PREGNANCY [None]
